FAERS Safety Report 23435251 (Version 2)
Quarter: 2024Q1

REPORT INFORMATION
  Report Type: Report from Study
  Country: US (occurrence: US)
  Receive Date: 20240123
  Receipt Date: 20240124
  Transmission Date: 20240409
  Serious: Yes (Hospitalization, Other)
  Sender: FDA-Public Use
  Company Number: US-ABBVIE-5595560

PATIENT
  Sex: Male

DRUGS (1)
  1. HUMIRA [Suspect]
     Active Substance: ADALIMUMAB
     Indication: Crohn^s disease
     Dosage: - FORM STRENGTH: 80 MG
     Route: 058
     Dates: start: 20210801

REACTIONS (8)
  - Crohn^s disease [Recovered/Resolved]
  - Hypophagia [Recovering/Resolving]
  - Fatigue [Recovering/Resolving]
  - Crohn^s disease [Recovering/Resolving]
  - Therapeutic product effect decreased [Unknown]
  - Pneumonia [Recovering/Resolving]
  - Pain [Recovering/Resolving]
  - Sepsis [Recovering/Resolving]

NARRATIVE: CASE EVENT DATE: 20230101
